FAERS Safety Report 17989427 (Version 1)
Quarter: 2020Q3

REPORT INFORMATION
  Report Type: Spontaneous
  Country: JP (occurrence: JP)
  Receive Date: 20200707
  Receipt Date: 20200707
  Transmission Date: 20201103
  Serious: Yes (Death, Hospitalization)
  Sender: FDA-Public Use
  Company Number: JP-PBT-000371

PATIENT
  Age: 57 Year

DRUGS (2)
  1. TACROLIMUS. [Suspect]
     Active Substance: TACROLIMUS
     Indication: MYASTHENIA GRAVIS
     Route: 065
  2. PREDNISOLONE. [Suspect]
     Active Substance: PREDNISOLONE
     Indication: MYASTHENIA GRAVIS
     Route: 065

REACTIONS (5)
  - Gastrointestinal perforation [Unknown]
  - Condition aggravated [Unknown]
  - Mycobacterium abscessus infection [Fatal]
  - Spondylitis [Unknown]
  - Product use in unapproved indication [Unknown]
